FAERS Safety Report 5361173-X (Version None)
Quarter: 2007Q2

REPORT INFORMATION
  Report Type: 
  Country: None (occurrence: None)
  Receive Date: 20070614
  Receipt Date: 20070529
  Transmission Date: 20071010
  Serious: Yes (Hospitalization)
  Sender: FDA-Public Use
  Company Number: DSA_30036_2007

PATIENT
  Age: 79 Year
  Sex: Female

DRUGS (1)
  1. HERBESSER (HERBESSER - SLOW RELEASE) [Suspect]
     Indication: HYPERTENSION
     Dosage: 100 MG ORAL
     Route: 048
     Dates: start: 20070101, end: 20070330

REACTIONS (1)
  - SICK SINUS SYNDROME [None]
